FAERS Safety Report 7063498-9 (Version None)
Quarter: 2010Q4

REPORT INFORMATION
  Report Type: 
  Country: None (occurrence: None)
  Receive Date: 20101026
  Receipt Date: 20100218
  Transmission Date: 20110411
  Serious: No
  Sender: FDA-Public Use
  Company Number: US-ABBOTT-10P-163-0628313-00

PATIENT
  Sex: Female
  Weight: 131.66 kg

DRUGS (2)
  1. LUPRON DEPOT [Suspect]
     Indication: PREMEDICATION
     Route: 030
     Dates: start: 20100127
  2. PROCRIT [Concomitant]
     Indication: PRODUCT USED FOR UNKNOWN INDICATION
     Dates: start: 20100219

REACTIONS (1)
  - RASH [None]
